FAERS Safety Report 14992607 (Version 2)
Quarter: 2018Q4

REPORT INFORMATION
  Report Type: Spontaneous
  Country: DE (occurrence: DE)
  Receive Date: 20180609
  Receipt Date: 20181222
  Transmission Date: 20190204
  Serious: Yes (Hospitalization, Other)
  Sender: FDA-Public Use
  Company Number: DE-AUROBINDO-AUR-APL-2018-030012

PATIENT
  Sex: Female
  Weight: 64 kg

DRUGS (12)
  1. ELIQUIS [Concomitant]
     Active Substance: APIXABAN
     Indication: PRODUCT USED FOR UNKNOWN INDICATION
     Dosage: 10 MILLIGRAM, ONCE A DAY
     Route: 048
     Dates: start: 20160101
  2. OMEPRAZOLE. [Concomitant]
     Active Substance: OMEPRAZOLE
     Indication: PROPHYLAXIS
     Dosage: 20 MILLIGRAM, DAILY (20 OT DAILY )
     Route: 048
  3. LISINOPRIL COMP [Suspect]
     Active Substance: HYDROCHLOROTHIAZIDE\LISINOPRIL
     Indication: PRODUCT USED FOR UNKNOWN INDICATION
     Dosage: UNK
     Route: 065
     Dates: end: 2014
  4. DICLOFENAC RATIOPHARM              /00372302/ [Suspect]
     Active Substance: DICLOFENAC SODIUM
     Indication: PRODUCT USED FOR UNKNOWN INDICATION
     Dosage: UNK
     Route: 048
     Dates: start: 2013, end: 2015
  5. TAVOR (LORAZEPAM) [Concomitant]
     Active Substance: LORAZEPAM
     Indication: PRODUCT USED FOR UNKNOWN INDICATION
     Dosage: 0.5 OT, PRN, ONLY AT NIGHT
     Route: 048
     Dates: start: 20160101
  6. DIGITOXIN [Concomitant]
     Active Substance: DIGITOXIN
     Indication: CARDIAC DISORDER
     Dosage: UNK, DAILY
     Route: 048
     Dates: start: 20160101
  7. LISINOPRIL TABLET [Suspect]
     Active Substance: LISINOPRIL
     Dosage: 1 DOSAGE FORM, DAILY (1 A PHARMA NON-AZ)
     Route: 048
     Dates: end: 20151231
  8. LISINOPRIL 1 A PHARMA [Suspect]
     Active Substance: LISINOPRIL
     Indication: CARDIAC FAILURE CHRONIC
     Dosage: 1 DOSAGE FORM, ONCE A DAY
     Route: 048
     Dates: start: 2005, end: 20151231
  9. BISOPROLOL 1A PHARMA [Concomitant]
     Active Substance: BISOPROLOL
     Indication: CARDIAC DISORDER
     Dosage: 5 UNK, UNK?-0-?-0
     Route: 065
  10. BISOLICH [Concomitant]
     Active Substance: BISOPROLOL FUMARATE
     Indication: PRODUCT USED FOR UNKNOWN INDICATION
     Dosage: 5 MILLIGRAM, ONCE A DAY
     Route: 048
     Dates: start: 20160101
  11. DIGITOXIN [Concomitant]
     Active Substance: DIGITOXIN
     Dosage: 0.07 MILLIGRAM, ONCE A DAY, PAUSE ON WEEKEND
     Route: 048
     Dates: start: 20160101
  12. LISINOPRIL TABLET [Suspect]
     Active Substance: LISINOPRIL
     Indication: CARDIAC FAILURE CHRONIC
     Dosage: UNK, ONCE A DAY
     Route: 048

REACTIONS (22)
  - Cataract [Recovered/Resolved]
  - Dizziness [Recovering/Resolving]
  - Restless legs syndrome [Not Recovered/Not Resolved]
  - Type 2 diabetes mellitus [Recovering/Resolving]
  - Arrhythmia [Unknown]
  - Blood pressure increased [Recovering/Resolving]
  - Hypertension [Recovering/Resolving]
  - Poor quality sleep [Unknown]
  - Vomiting [Recovering/Resolving]
  - Myalgia [Recovered/Resolved]
  - Visual impairment [Recovering/Resolving]
  - Renal disorder [Unknown]
  - Pain in extremity [Unknown]
  - Restlessness [Unknown]
  - Ulna fracture [Unknown]
  - Thrombosis [Recovered/Resolved]
  - Osteoarthritis [Recovered/Resolved]
  - Pigmentation disorder [Recovered/Resolved]
  - Lumbar spinal stenosis [Recovered/Resolved]
  - Hypotension [Recovering/Resolving]
  - Road traffic accident [Unknown]
  - Blood pressure fluctuation [Recovering/Resolving]

NARRATIVE: CASE EVENT DATE: 2005
